FAERS Safety Report 5648451-1 (Version None)
Quarter: 2008Q1

REPORT INFORMATION
  Report Type: 
  Country: None (occurrence: None)
  Receive Date: 20080303
  Receipt Date: 20080303
  Transmission Date: 20080703
  Serious: Yes (Life-Threatening, Other)
  Sender: FDA-Public Use
  Company Number: None

PATIENT
  Age: 33 Year
  Sex: Female
  Weight: 125.6464 kg

DRUGS (2)
  1. SEROQUEL [Suspect]
     Indication: BIPOLAR II DISORDER
  2. SEROQUEL [Suspect]
     Indication: SCHIZOAFFECTIVE DISORDER

REACTIONS (2)
  - DIABETES MELLITUS [None]
  - WEIGHT INCREASED [None]
